FAERS Safety Report 24057595 (Version 1)
Quarter: 2024Q3

REPORT INFORMATION
  Report Type: Spontaneous
  Country: GB (occurrence: GB)
  Receive Date: 20240706
  Receipt Date: 20240706
  Transmission Date: 20241016
  Serious: Yes (Death)
  Sender: AUROBINDO
  Company Number: GB-AUROBINDO-AUR-APL-2024-032799

PATIENT
  Age: 5 Year
  Sex: Female

DRUGS (3)
  1. LINEZOLID [Suspect]
     Active Substance: LINEZOLID
     Indication: Streptococcal sepsis
     Dosage: UNK
     Route: 065
  2. CEFOTAXIME [Suspect]
     Active Substance: CEFOTAXIME SODIUM
     Indication: Streptococcal sepsis
     Dosage: UNK
     Route: 065
  3. CLINDAMYCIN [Suspect]
     Active Substance: CLINDAMYCIN
     Indication: Streptococcal sepsis
     Dosage: UNK
     Route: 065

REACTIONS (1)
  - Drug ineffective [Fatal]
